FAERS Safety Report 8262237-3 (Version None)
Quarter: 2012Q2

REPORT INFORMATION
  Report Type: 
  Country: None (occurrence: None)
  Receive Date: 20120402
  Receipt Date: 20120319
  Transmission Date: 20120825
  Serious: Yes (Life-Threatening)
  Sender: FDA-Public Use
  Company Number: 1231969

PATIENT
  Age: 68 Year
  Sex: Male

DRUGS (3)
  1. GENTAMICIN [Concomitant]
  2. CEFTRIAXONE [Suspect]
     Indication: PRODUCT USED FOR UNKNOWN INDICATION
     Dosage: 2.0 GRAM, 1 EVERY 12 HOURS, INTRAVENOUS (NOT OTHERWISE SPECIFIED)
     Route: 042
  3. VANCOMYCIN [Concomitant]

REACTIONS (3)
  - ANGIOEDEMA [None]
  - PARAESTHESIA ORAL [None]
  - THROAT TIGHTNESS [None]
